FAERS Safety Report 7910175-5 (Version None)
Quarter: 2011Q4

REPORT INFORMATION
  Report Type: 
  Country: None (occurrence: None)
  Receive Date: 20111111
  Receipt Date: 20111104
  Transmission Date: 20120403
  Serious: Yes (Hospitalization)
  Sender: FDA-Public Use
  Company Number: US-US-EMD SERONO, INC.-231590J10USA

PATIENT
  Sex: Female

DRUGS (3)
  1. ACETAMINOPHEN [Concomitant]
     Indication: PREMEDICATION
     Route: 065
  2. REBIF [Suspect]
     Route: 058
  3. REBIF [Suspect]
     Indication: MULTIPLE SCLEROSIS
     Route: 058
     Dates: start: 20100208

REACTIONS (4)
  - HAEMORRHAGE [None]
  - FEMORAL ARTERY ANEURYSM [None]
  - THROMBOSIS [None]
  - NASOPHARYNGITIS [None]
